FAERS Safety Report 16052345 (Version 1)
Quarter: 2019Q1

REPORT INFORMATION
  Report Type: Spontaneous
  Country: US (occurrence: US)
  Receive Date: 20190308
  Receipt Date: 20190308
  Transmission Date: 20190418
  Serious: Yes (Death, Other)
  Sender: FDA-Public Use
  Company Number: US-009507513-1903USA002280

PATIENT
  Age: 50 Year
  Sex: Female

DRUGS (3)
  1. AMLODIPINE [Suspect]
     Active Substance: AMLODIPINE BESYLATE
     Indication: SUSPECTED SUICIDE ATTEMPT
     Route: 048
  2. DILTIAZEM. [Suspect]
     Active Substance: DILTIAZEM
     Indication: SUSPECTED SUICIDE ATTEMPT
     Route: 048
  3. COZAAR [Suspect]
     Active Substance: LOSARTAN POTASSIUM
     Indication: SUSPECTED SUICIDE ATTEMPT
     Dosage: UNK
     Route: 048

REACTIONS (2)
  - Cardiac arrest [Fatal]
  - Respiratory arrest [Fatal]
